FAERS Safety Report 6593043-3 (Version None)
Quarter: 2010Q1

REPORT INFORMATION
  Report Type: 
  Country: None (occurrence: None)
  Receive Date: 20100222
  Receipt Date: 20100212
  Transmission Date: 20100710
  Serious: Yes (Other)
  Sender: FDA-Public Use
  Company Number: US-JNJFOC-20100206562

PATIENT
  Sex: Female
  Weight: 104.33 kg

DRUGS (2)
  1. FENTANYL-100 [Suspect]
     Indication: PAIN
     Route: 062
  2. MANY OTHER UNSPECIFIED MEDICATIONS [Concomitant]
     Route: 065

REACTIONS (4)
  - DEHYDRATION [None]
  - NAUSEA [None]
  - VOMITING [None]
  - WEIGHT DECREASED [None]
